FAERS Safety Report 5299507-7 (Version None)
Quarter: 2007Q2

REPORT INFORMATION
  Report Type: 
  Country: None (occurrence: None)
  Receive Date: 20070417
  Receipt Date: 20070312
  Transmission Date: 20071010
  Serious: Yes (Other)
  Sender: FDA-Public Use
  Company Number: US-SANOFI-SYNTHELABO-A03200702276

PATIENT
  Sex: Female

DRUGS (4)
  1. XANAX [Concomitant]
     Dosage: UNK
     Route: 065
  2. EQUAGESIC [Concomitant]
     Dosage: UNK
     Route: 065
  3. AMBIEN [Suspect]
     Indication: INSOMNIA
     Route: 048
     Dates: start: 20050101
  4. AMBIEN [Suspect]
     Route: 048

REACTIONS (8)
  - AMNESIA [None]
  - DRUG ABUSER [None]
  - DRUG DEPENDENCE [None]
  - DRUG WITHDRAWAL SYNDROME [None]
  - FALL [None]
  - INJURY [None]
  - ROAD TRAFFIC ACCIDENT [None]
  - SLEEP WALKING [None]
